FAERS Safety Report 20428081 (Version 1)
Quarter: 2022Q1

REPORT INFORMATION
  Report Type: Other
  Country: None (occurrence: US)
  Receive Date: 20220204
  Receipt Date: 20220204
  Transmission Date: 20220423
  Serious: Yes (Death)
  Sender: FDA-Public Use
  Company Number: US-Nuvo Pharmaceuticals Inc-2124603

PATIENT
  Age: 28 Year
  Sex: Male

DRUGS (18)
  1. DIAZEPAM [Suspect]
     Active Substance: DIAZEPAM
     Indication: Product used for unknown indication
     Route: 065
  2. FENTANYL [Suspect]
     Active Substance: FENTANYL
     Route: 065
  3. ALPRAZOLAM [Suspect]
     Active Substance: ALPRAZOLAM
     Route: 065
  4. ETIZOLAM [Suspect]
     Active Substance: ETIZOLAM
     Route: 065
  5. ALCOHOL [Suspect]
     Active Substance: ALCOHOL
     Route: 065
  6. 7-AMINOCLONAZEPAM [Suspect]
     Active Substance: 7-AMINOCLONAZEPAM
     Route: 065
  7. ACETAMINOPHEN [Suspect]
     Active Substance: ACETAMINOPHEN
     Route: 065
  8. .ALPHA.-HYDROXYALPRAZOLAM [Suspect]
     Active Substance: .ALPHA.-HYDROXYALPRAZOLAM
     Route: 065
  9. AMPHETAMINE SULFATE [Suspect]
     Active Substance: AMPHETAMINE SULFATE
     Route: 065
  10. BENZOYLECGONINE [Suspect]
     Active Substance: BENZOYLECGONINE
     Route: 065
  11. CHLORPHENIRAMINE [Suspect]
     Active Substance: CHLORPHENIRAMINE
     Route: 065
  12. DOXEPIN HYDROCHLORIDE [Suspect]
     Active Substance: DOXEPIN HYDROCHLORIDE
     Route: 065
  13. HYDROCODONE [Suspect]
     Active Substance: HYDROCODONE
     Route: 065
  14. METHAMPHETAMINE HYDROCHLORIDE [Suspect]
     Active Substance: METHAMPHETAMINE HYDROCHLORIDE
     Route: 065
  15. NORDAZEPAM [Suspect]
     Active Substance: NORDAZEPAM
     Route: 065
  16. NORFENTANYL [Suspect]
     Active Substance: NORFENTANYL
     Route: 065
  17. PROMETHAZINE [Suspect]
     Active Substance: PROMETHAZINE HYDROCHLORIDE
     Route: 065
  18. TEMAZEPAM [Suspect]
     Active Substance: TEMAZEPAM
     Route: 065

REACTIONS (1)
  - Toxicity to various agents [Fatal]
